FAERS Safety Report 9006301 (Version 1)
Quarter: 2013Q1

REPORT INFORMATION
  Report Type: Spontaneous
  Country: US (occurrence: US)
  Receive Date: 20130110
  Receipt Date: 20130110
  Transmission Date: 20140127
  Serious: Yes (Other)
  Sender: FDA-Public Use
  Company Number: US-009507513-0901USA02191

PATIENT
  Sex: Female
  Weight: 49.9 kg

DRUGS (2)
  1. SINGULAIR [Suspect]
     Indication: MULTIPLE ALLERGIES
     Dosage: 10 MG, ONCE DAILY
     Route: 048
     Dates: end: 20080801
  2. SINGULAIR [Suspect]
     Indication: ASTHMA

REACTIONS (8)
  - Affective disorder [Unknown]
  - Condition aggravated [Unknown]
  - Depression [Unknown]
  - Disturbance in attention [Unknown]
  - Dizziness [Unknown]
  - Irritability [Unknown]
  - Panic disorder [Unknown]
  - Mood swings [Unknown]
